FAERS Safety Report 17952049 (Version 2)
Quarter: 2021Q1

REPORT INFORMATION
  Report Type: Spontaneous
  Country: BR (occurrence: BR)
  Receive Date: 20200626
  Receipt Date: 20210316
  Transmission Date: 20210419
  Serious: Yes (Death, Other)
  Sender: FDA-Public Use
  Company Number: NVSC2020BR168777

PATIENT
  Sex: Female
  Weight: 74 kg

DRUGS (3)
  1. MEKINIST [Suspect]
     Active Substance: TRAMETINIB DIMETHYL SULFOXIDE
     Indication: MALIGNANT MELANOMA
     Dosage: UNK (2 YEARS AGO)
     Route: 065
  2. TAFINLAR [Suspect]
     Active Substance: DABRAFENIB MESYLATE
     Indication: MALIGNANT MELANOMA
     Dosage: UNK (2 YEARS AGO)
     Route: 065
  3. DOMPERIDONE [Concomitant]
     Active Substance: DOMPERIDONE
     Indication: DYSPEPSIA
     Dosage: UNK AFTER MEALS/ (MORE OR LESS 1 YEAR AGO)
     Route: 065

REACTIONS (8)
  - Hypertension [Not Recovered/Not Resolved]
  - Drug dependence [Not Recovered/Not Resolved]
  - Malignant neoplasm progression [Fatal]
  - Neoplasm recurrence [Unknown]
  - Metastasis [Fatal]
  - Tenderness [Not Recovered/Not Resolved]
  - Malignant melanoma [Fatal]
  - Decreased appetite [Not Recovered/Not Resolved]
